FAERS Safety Report 9241319 (Version 1)
Quarter: 2013Q1

REPORT INFORMATION
  Report Type: Spontaneous
  Country: US (occurrence: None)
  Receive Date: 20121113
  Receipt Date: 20121113
  Transmission Date: 20140127
  Serious: Yes (Other)
  Sender: FDA-Public Use
  Company Number: PHEH2011US03626

PATIENT
  Age: 14 Year
  Sex: Female
  Weight: 35.9 kg

DRUGS (5)
  1. OXCARBAZEPINE [Suspect]
     Indication: CONVULSION
     Route: 048
  2. SINGULAIR [Concomitant]
  3. PULMICORT (BUDESONIDE) [Concomitant]
  4. PREVACID (LANSOPRAZOLE) [Concomitant]
  5. ALBUTEROL )SALBUTAMOL) [Concomitant]

REACTIONS (1)
  - Alopecia [None]
